FAERS Safety Report 9144886 (Version 1)
Quarter: 2013Q1

REPORT INFORMATION
  Report Type: Spontaneous
  Country: SE (occurrence: SE)
  Receive Date: 20130307
  Receipt Date: 20130307
  Transmission Date: 20140127
  Serious: Yes (Hospitalization)
  Sender: FDA-Public Use
  Company Number: SE-009507513-1302SWE012519

PATIENT
  Age: 75 Year
  Sex: Male

DRUGS (9)
  1. SINEMET [Suspect]
     Dosage: 0.5 DF, QD
     Route: 048
     Dates: start: 20111118, end: 20111226
  2. EXELON (RIVASTIGMINE) [Suspect]
     Dosage: 1 DF, BID
     Dates: start: 20120127, end: 20120220
  3. CITALOPRAM [Concomitant]
  4. SIMVASTATIN [Concomitant]
  5. WARAN [Concomitant]
  6. BEHEPAN [Concomitant]
  7. IMPUGAN [Concomitant]
  8. IMDUR [Concomitant]
  9. SELOKEN ZOC [Concomitant]

REACTIONS (6)
  - Confusional state [Not Recovered/Not Resolved]
  - Anxiety [Not Recovered/Not Resolved]
  - Amnesia [Unknown]
  - Diabetes mellitus [Unknown]
  - Nightmare [Unknown]
  - Muscle spasms [Unknown]
